FAERS Safety Report 7293893-4 (Version None)
Quarter: 2011Q1

REPORT INFORMATION
  Report Type: 
  Country: None (occurrence: None)
  Receive Date: 20110215
  Receipt Date: 20110209
  Transmission Date: 20110831
  Serious: Yes (Other)
  Sender: FDA-Public Use
  Company Number: GB-PFIZER INC-2011023688

PATIENT
  Age: 65 Year
  Sex: Female

DRUGS (1)
  1. EPANUTIN [Suspect]
     Indication: EPILEPSY
     Dosage: 150 MG, 2X/DAY

REACTIONS (13)
  - ANXIETY [None]
  - BLOOD DISORDER [None]
  - FOLATE DEFICIENCY [None]
  - DEAFNESS UNILATERAL [None]
  - ALLERGY TO CHEMICALS [None]
  - FOOD INTOLERANCE [None]
  - DEPRESSION [None]
  - VITAMIN B6 DEFICIENCY [None]
  - OSTEOPOROSIS [None]
  - HIP FRACTURE [None]
  - SPINAL FRACTURE [None]
  - FALL [None]
  - VITAMIN D DEFICIENCY [None]
